FAERS Safety Report 5203586-2 (Version None)
Quarter: 2007Q1

REPORT INFORMATION
  Report Type: 
  Country: None (occurrence: None)
  Receive Date: 20070110
  Receipt Date: 20070101
  Transmission Date: 20070707
  Serious: Yes (Death, Disabling)
  Sender: FDA-Public Use
  Company Number: PHBS2007IT00592

PATIENT
  Age: 83 Year
  Sex: Female

DRUGS (3)
  1. ZOMETA [Suspect]
     Indication: METASTASES TO BONE
     Dosage: 4 MG, MONTHLY
     Route: 042
     Dates: start: 20020501, end: 20041109
  2. ASPIRIN [Concomitant]
     Route: 065
  3. LANITOP [Concomitant]
     Route: 065

REACTIONS (2)
  - DEATH [None]
  - OSTEONECROSIS [None]
